FAERS Safety Report 23866271 (Version 2)
Quarter: 2024Q4

REPORT INFORMATION
  Report Type: Spontaneous
  Country: CA (occurrence: CA)
  Receive Date: 20240517
  Receipt Date: 20241009
  Transmission Date: 20250115
  Serious: Yes (Other)
  Sender: JOHNSON AND JOHNSON
  Company Number: CA-VIIV HEALTHCARE LIMITED-CA2023092847

PATIENT
  Age: 68 Year
  Sex: Male

DRUGS (12)
  1. RILPIVIRINE [Suspect]
     Active Substance: RILPIVIRINE
     Indication: HIV infection
     Dosage: UNK UNK, Q2M 600MG/3ML CABOTEGRAVIR, 900MG/3ML RILPIVIRINE, IM, EVERY 2 MONTHS
     Route: 030
     Dates: start: 20230605
  2. RILPIVIRINE [Suspect]
     Active Substance: RILPIVIRINE
     Dosage: UNK, UNK,Q2M, 600MG/3ML CABOTEGRAVIR, 900MG/3ML RILPIVIRINE, IM, EVERY 2 MONTHS
     Route: 030
  3. RILPIVIRINE [Suspect]
     Active Substance: RILPIVIRINE
     Dosage: UNK UNK, Q2M,600MG/3ML CABOTEGRAVIR, 900MG/3ML RILPIVIRINE
     Route: 030
  4. RILPIVIRINE [Suspect]
     Active Substance: RILPIVIRINE
     Dosage: UNK, Q2M, 600MG/3ML CABOTEGRAVIR, 900MG/3ML RILPIVIRINE,
     Route: 030
  5. RILPIVIRINE [Suspect]
     Active Substance: RILPIVIRINE
     Dosage: UNK UNK, Q2M 600MG/3ML CABOTEGRAVIR, 900MG/3ML RILPIVIRINE
     Route: 030
  6. RILPIVIRINE [Suspect]
     Active Substance: RILPIVIRINE
     Dosage: UNK UNK, Q2M, 600MG/3ML CABOTEGRAVIR, 900MG/3ML RILPIVIRINE
     Route: 030
  7. CABOTEGRAVIR [Suspect]
     Active Substance: CABOTEGRAVIR
     Indication: HIV infection
     Dosage: UNK UNK, Q2M 600MG/3ML CABOTEGRAVIR, 900MG/3ML RILPIVIRINE, IM, EVERY 2 MONTHS
     Route: 030
     Dates: start: 20230605
  8. CABOTEGRAVIR [Suspect]
     Active Substance: CABOTEGRAVIR
     Dosage: UNK, UNK,Q2M, 600MG/3ML CABOTEGRAVIR, 900MG/3ML RILPIVIRINE, IM, EVERY 2 MONTHS
     Route: 030
  9. CABOTEGRAVIR [Suspect]
     Active Substance: CABOTEGRAVIR
     Dosage: UNK UNK, Q2M,600MG/3ML CABOTEGRAVIR, 900MG/3ML RILPIVIRINE
     Route: 030
  10. CABOTEGRAVIR [Suspect]
     Active Substance: CABOTEGRAVIR
     Dosage: UNK, Q2M, 600MG/3ML CABOTEGRAVIR, 900MG/3ML RILPIVIRINE,
     Route: 030
  11. CABOTEGRAVIR [Suspect]
     Active Substance: CABOTEGRAVIR
     Dosage: UNK UNK, Q2M 600MG/3ML CABOTEGRAVIR, 900MG/3ML RILPIVIRINE
     Route: 030
  12. CABOTEGRAVIR [Suspect]
     Active Substance: CABOTEGRAVIR
     Dosage: UNK UNK, Q2M, 600MG/3ML CABOTEGRAVIR, 900MG/3ML RILPIVIRINE
     Route: 030

REACTIONS (9)
  - Neoplasm malignant [Recovering/Resolving]
  - Adrenalectomy [Unknown]
  - Injection site pain [Recovered/Resolved]
  - Diarrhoea [Unknown]
  - Depressed mood [Unknown]
  - Blood pressure systolic increased [Recovering/Resolving]
  - Pain [Recovered/Resolved]
  - Nose deformity [Unknown]
  - Adrenal gland injury [Unknown]

NARRATIVE: CASE EVENT DATE: 20230601
